FAERS Safety Report 24265923 (Version 1)
Quarter: 2024Q3

REPORT INFORMATION
  Report Type: Spontaneous
  Country: US (occurrence: US)
  Receive Date: 20240830
  Receipt Date: 20240830
  Transmission Date: 20241017
  Serious: Yes (Life-Threatening, Other)
  Sender: NOVO NORDISK
  Company Number: US-NOVOPROD-1274183

PATIENT
  Age: 56 Year
  Sex: Female

DRUGS (1)
  1. LEVEMIR [Suspect]
     Active Substance: INSULIN DETEMIR
     Indication: Type 2 diabetes mellitus
     Dosage: UNK
     Route: 058
     Dates: start: 2012, end: 202407

REACTIONS (3)
  - Cerebrovascular accident [Recovered/Resolved]
  - Glycosylated haemoglobin increased [Recovered/Resolved]
  - Drug hypersensitivity [Not Recovered/Not Resolved]
